FAERS Safety Report 6275475-6 (Version None)
Quarter: 2009Q3

REPORT INFORMATION
  Report Type: 
  Country: None (occurrence: None)
  Receive Date: 20090721
  Receipt Date: 20090710
  Transmission Date: 20100115
  Serious: Yes (Death)
  Sender: FDA-Public Use
  Company Number: GR-TEVA-191957ISR

PATIENT
  Age: 60 Year
  Sex: Male
  Weight: 76 kg

DRUGS (7)
  1. CISPLATIN [Suspect]
     Indication: HEAD AND NECK CANCER
     Route: 042
     Dates: start: 20070319, end: 20070507
  2. CETUXIMAB [Suspect]
     Indication: HEAD AND NECK CANCER
     Route: 042
     Dates: start: 20070319, end: 20070507
  3. ONDANSETRON HYDROCHLORIDE [Concomitant]
     Indication: NAUSEA
     Route: 048
     Dates: start: 20070320, end: 20070322
  4. NIMESULIDE [Concomitant]
     Indication: DYSPHAGIA
     Route: 048
     Dates: start: 20070322, end: 20070430
  5. PARACETAMOL WITH CODEINE (LONALGAL) [Concomitant]
     Dosage: 500+30MG TAB
     Route: 048
     Dates: start: 20070430, end: 20070517
  6. FENTANYL-100 [Concomitant]
     Indication: DYSPHAGIA
     Route: 062
     Dates: start: 20070430, end: 20070518
  7. ITRACONAZOLE [Concomitant]
     Indication: STOMATITIS
     Route: 048
     Dates: start: 20070424, end: 20070518

REACTIONS (1)
  - CARDIAC ARREST [None]
